FAERS Safety Report 9170120 (Version 1)
Quarter: 2013Q1

REPORT INFORMATION
  Report Type: Spontaneous
  Country: US (occurrence: None)
  Receive Date: 20130314
  Receipt Date: 20130314
  Transmission Date: 20140127
  Serious: Yes (Life-Threatening)
  Sender: FDA-Public Use
  Company Number: None

PATIENT
  Sex: Female
  Weight: 39 kg

DRUGS (14)
  1. AZACITIDINE [Suspect]
     Indication: ACUTE MYELOID LEUKAEMIA
     Dosage: 55MG DAILYX5DAYSQ28DAY SQ
     Route: 058
     Dates: start: 20130115, end: 20130215
  2. VALPROIC ACID [Suspect]
     Indication: ACUTE MYELOID LEUKAEMIA
     Dosage: 750MG BID PO
     Route: 048
     Dates: start: 20130115, end: 20130312
  3. DIPHENOXYLATE WITH ATROPINE [Concomitant]
  4. CYMBALTA [Concomitant]
  5. CYMBALTA [Concomitant]
  6. FOLIC ACID [Concomitant]
  7. NORCO [Concomitant]
  8. LOPERAMIDE [Concomitant]
  9. METFORMIN [Concomitant]
  10. OLANZAPINE [Concomitant]
  11. POSACONAZOLE [Concomitant]
  12. PROCHLORPERAZINE [Concomitant]
  13. SULFAMETHOXAZOLE [Concomitant]
  14. TRIMETHOPRIM [Concomitant]

REACTIONS (2)
  - Acute myeloid leukaemia [None]
  - Leukaemia recurrent [None]
